FAERS Safety Report 8170861-1 (Version None)
Quarter: 2012Q1

REPORT INFORMATION
  Report Type: 
  Country: None (occurrence: None)
  Receive Date: 20120104
  Receipt Date: 20111018
  Transmission Date: 20120608
  Serious: No
  Sender: FDA-Public Use
  Company Number: 2011HGS-002652

PATIENT
  Age: 67 Year
  Sex: Female
  Weight: 77.1115 kg

DRUGS (15)
  1. PAMINE (HYOSCINE METHOBROMIDE) (HYOSCINE METHOBROMIDE) [Concomitant]
  2. PROBIOTICS (LACTOBACILLUS REUTER1) (LACTOBACILLUS REUTER1) [Concomitant]
  3. COMBIGAN (BRIMONIDINE TARTRATE) (BRIMONDINE TARTRATE) [Concomitant]
  4. TOPROL (METOPROLOL SUCCINATE) (METOPROLOL SUCCINATE) [Concomitant]
  5. BENLYSTA [Suspect]
     Indication: FIBROMYALGIA
     Dosage: 10 MG/KG, EVERY 2 WEEKS X 3 THEN EVERY 4 WEEKS, INTRAVENOUS DRIP
     Route: 041
     Dates: start: 20110915
  6. AMBIEN [Concomitant]
  7. AMLODIPINE BESILATE (AMLODIPINE BESILATE) (AMLODIPINE BESILATE) [Concomitant]
  8. ANTIVERT (MECLOZINE HYDROCHLORIDE) (MECLOZINE HYDROCHLORIDE) [Concomitant]
  9. ZOLOFT [Concomitant]
  10. FOLIC ACID [Concomitant]
  11. METHOTREXATE [Concomitant]
  12. SYNTHROID (LEVOTHYROXINE SODIUM) (LEVOTHYROXINE SODIUM) [Concomitant]
  13. DEXILANT (PROTON PUMP INHIBITORS) (NULL) [Concomitant]
  14. PREDNISONE [Concomitant]
  15. DIOVAN [Concomitant]

REACTIONS (3)
  - HEADACHE [None]
  - MIGRAINE [None]
  - OFF LABEL USE [None]
